FAERS Safety Report 8906521 (Version 1)
Quarter: 2012Q4

REPORT INFORMATION
  Report Type: Spontaneous
  Country: GB (occurrence: None)
  Receive Date: 20121108
  Receipt Date: 20121108
  Transmission Date: 20130627
  Serious: Yes (Other)
  Sender: FDA-Public Use
  Company Number: GER/UKI/12/0026527

PATIENT
  Age: 38 Year
  Sex: Male
  Weight: 88.9 kg

DRUGS (1)
  1. TERBINAFINE [Suspect]
     Indication: FUNGAL INFECTION OF NAIL
     Route: 048

REACTIONS (1)
  - Anxiety [None]
